FAERS Safety Report 5935362-7 (Version None)
Quarter: 2008Q4

REPORT INFORMATION
  Report Type: 
  Country: None (occurrence: None)
  Receive Date: 20081028
  Receipt Date: 20081013
  Transmission Date: 20090506
  Serious: Yes (Disabling)
  Sender: FDA-Public Use
  Company Number: 2008S1018578

PATIENT
  Age: 82 Year
  Sex: Male

DRUGS (3)
  1. METFORMIN HCL [Suspect]
     Indication: DIABETES MELLITUS
     Dosage: 1 GM; TWICE A DAY, ORAL
     Route: 048
     Dates: end: 20080501
  2. BRONCHODIL/REPROTEROL HYDROCHLORIDE) [Concomitant]
  3. INSULIN (INSULIN) [Concomitant]

REACTIONS (1)
  - DYSPNOEA [None]
